FAERS Safety Report 14039880 (Version 2)
Quarter: 2017Q4

REPORT INFORMATION
  Report Type: Spontaneous
  Country: PT (occurrence: PT)
  Receive Date: 20171004
  Receipt Date: 20171006
  Transmission Date: 20180321
  Serious: Yes (Death)
  Sender: FDA-Public Use
  Company Number: PHHY2017PT144173

PATIENT
  Age: 32 Year
  Sex: Male

DRUGS (1)
  1. DESFERAL [Suspect]
     Active Substance: DEFEROXAMINE MESYLATE
     Indication: THALASSAEMIA
     Route: 065

REACTIONS (6)
  - Hepatitis [Fatal]
  - General physical health deterioration [Unknown]
  - Thalassaemia [Fatal]
  - Cardiac disorder [Fatal]
  - Blood iron increased [Fatal]
  - Liver disorder [Fatal]
